FAERS Safety Report 24920904 (Version 2)
Quarter: 2025Q1

REPORT INFORMATION
  Report Type: Spontaneous
  Country: US (occurrence: US)
  Receive Date: 20250204
  Receipt Date: 20250219
  Transmission Date: 20250409
  Serious: No
  Sender: TAKEDA
  Company Number: US-TAKEDA-2025TUS010091

PATIENT
  Age: 36 Year
  Sex: Female

DRUGS (1)
  1. ENTYVIO [Suspect]
     Active Substance: VEDOLIZUMAB
     Indication: Colitis ulcerative

REACTIONS (4)
  - Influenza like illness [Not Recovered/Not Resolved]
  - Rash macular [Not Recovered/Not Resolved]
  - Lethargy [Unknown]
  - Arthralgia [Unknown]

NARRATIVE: CASE EVENT DATE: 20250128
